FAERS Safety Report 16085042 (Version 1)
Quarter: 2019Q1

REPORT INFORMATION
  Report Type: Spontaneous
  Country: CA (occurrence: CA)
  Receive Date: 20190318
  Receipt Date: 20190318
  Transmission Date: 20190418
  Serious: Yes (Other)
  Sender: FDA-Public Use
  Company Number: IND-CA-009507513-1903CAN005415

PATIENT
  Sex: Male
  Weight: 10 kg

DRUGS (1)
  1. ROCURONIUM BROMIDE. [Suspect]
     Active Substance: ROCURONIUM BROMIDE
     Indication: PRODUCT USED FOR UNKNOWN INDICATION
     Dosage: 11 MILLIGRAM
     Route: 065

REACTIONS (4)
  - Electrolyte imbalance [Unknown]
  - Hypothermia [Unknown]
  - Cardiac arrest [Unknown]
  - Respiratory arrest [Unknown]
